FAERS Safety Report 4684538-8 (Version None)
Quarter: 2005Q2

REPORT INFORMATION
  Report Type: 
  Country: None (occurrence: None)
  Receive Date: 20050603
  Receipt Date: 20050526
  Transmission Date: 20051028
  Serious: Yes (Hospitalization, Other)
  Sender: FDA-Public Use
  Company Number: 2005080495

PATIENT
  Sex: Female

DRUGS (3)
  1. LIPITOR [Suspect]
     Indication: ILL-DEFINED DISORDER
  2. ZYRTEC [Suspect]
     Indication: ILL-DEFINED DISORDER
  3. PROCARDIA [Suspect]
     Indication: ILL-DEFINED DISORDER

REACTIONS (1)
  - KNEE ARTHROPLASTY [None]
